FAERS Safety Report 6127747-3 (Version None)
Quarter: 2009Q1

REPORT INFORMATION
  Report Type: 
  Country: None (occurrence: None)
  Receive Date: 20090323
  Receipt Date: 20090312
  Transmission Date: 20090719
  Serious: Yes (Hospitalization)
  Sender: FDA-Public Use
  Company Number: FR-AMGEN-UK277897

PATIENT
  Sex: Male
  Weight: 73 kg

DRUGS (3)
  1. PANITUMUMAB [Suspect]
     Indication: SQUAMOUS CELL CARCINOMA
     Route: 042
     Dates: start: 20071016
  2. MAGNESIUM CARBONATE [Concomitant]
     Route: 048
     Dates: start: 20080505
  3. MAGNESIUM CHLORIDE [Concomitant]
     Route: 042
     Dates: start: 20080505, end: 20080505

REACTIONS (1)
  - HYPERSENSITIVITY [None]
